FAERS Safety Report 4915255-4 (Version None)
Quarter: 2006Q1

REPORT INFORMATION
  Report Type: 
  Country: None (occurrence: None)
  Receive Date: 20060216
  Receipt Date: 20060216
  Transmission Date: 20060701
  Serious: Yes (Hospitalization)
  Sender: FDA-Public Use
  Company Number: None

PATIENT
  Sex: Female
  Weight: 81.6475 kg

DRUGS (2)
  1. NIACIN [Suspect]
     Indication: BLOOD CHOLESTEROL INCREASED
     Dosage: PO   PRIOR TO ADMISSION
     Route: 048
  2. MELA-CAL (OTC) [Concomitant]

REACTIONS (2)
  - BURNING SENSATION [None]
  - ERYTHEMA [None]
